FAERS Safety Report 9407910 (Version 1)
Quarter: 2013Q3

REPORT INFORMATION
  Report Type: Spontaneous
  Country: US (occurrence: US)
  Receive Date: 20130718
  Receipt Date: 20130718
  Transmission Date: 20140515
  Serious: Yes (Hospitalization, Disabling, Other)
  Sender: FDA-Public Use
  Company Number: US-009507513-1008USA04276

PATIENT
  Sex: Female
  Weight: 82.86 kg

DRUGS (7)
  1. JANUVIA [Suspect]
     Dosage: 100 MG, UNK
     Route: 048
  2. FEMARA [Concomitant]
  3. SYNTHROID [Concomitant]
  4. DOXEPIN HYDROCHLORIDE [Concomitant]
  5. ATIVAN [Concomitant]
  6. PRINZIDE [Concomitant]
  7. LIPITOR [Concomitant]
     Route: 048

REACTIONS (9)
  - Hypokalaemia [Unknown]
  - Pancreatitis [Unknown]
  - Anaemia [Unknown]
  - Breast mass [Unknown]
  - Internal injury [Unknown]
  - Cholecystectomy [Unknown]
  - Insomnia [Unknown]
  - Hyperlipidaemia [Unknown]
  - Osteopenia [Unknown]
